FAERS Safety Report 5248568-X (Version None)
Quarter: 2007Q1

REPORT INFORMATION
  Report Type: 
  Country: None (occurrence: None)
  Receive Date: 20070227
  Receipt Date: 20070219
  Transmission Date: 20070707
  Serious: Yes (Hospitalization)
  Sender: FDA-Public Use
  Company Number: FR-ABBOTT-07P-056-0359701-00

PATIENT
  Age: 52 Year
  Sex: Female

DRUGS (5)
  1. DEPAKENE [Suspect]
     Indication: EPILEPSY
     Route: 048
     Dates: start: 20061211, end: 20061223
  2. ENOXAPARIN SODIUM [Concomitant]
     Indication: EMBOLISM
     Route: 058
  3. ENOXAPARIN SODIUM [Concomitant]
     Indication: VENOUS THROMBOSIS
  4. RAMIPRIL [Concomitant]
     Indication: ESSENTIAL HYPERTENSION
     Route: 048
     Dates: start: 20060101
  5. INSULIN HUMAN [Concomitant]
     Indication: DIABETES MELLITUS
     Route: 058
     Dates: start: 20030101

REACTIONS (1)
  - DERMATITIS PSORIASIFORM [None]
